FAERS Safety Report 15569973 (Version 1)
Quarter: 2018Q4

REPORT INFORMATION
  Report Type: Spontaneous
  Country: US (occurrence: US)
  Receive Date: 20181025
  Receipt Date: 20181025
  Transmission Date: 20190205
  Serious: Yes (Hospitalization)
  Sender: FDA-Public Use
  Company Number: None

PATIENT
  Age: 12 Year
  Sex: Male

DRUGS (4)
  1. AMOX/K CLAV [Concomitant]
     Active Substance: AMOXICILLIN\CLAVULANATE POTASSIUM
  2. SERTRALINE [Concomitant]
     Active Substance: SERTRALINE HYDROCHLORIDE
  3. IPRATROPIUM [Concomitant]
     Active Substance: IPRATROPIUM
  4. NUTROPIN AQ [Suspect]
     Active Substance: SOMATROPIN
     Indication: RENAL TRANSPLANT
     Route: 058
     Dates: start: 20180901

REACTIONS (3)
  - Adenovirus infection [None]
  - Product dose omission [None]
  - Pneumonia [None]

NARRATIVE: CASE EVENT DATE: 20181016
